FAERS Safety Report 23804200 (Version 3)
Quarter: 2024Q3

REPORT INFORMATION
  Report Type: Spontaneous
  Country: JP (occurrence: None)
  Receive Date: 20240501
  Receipt Date: 20240719
  Transmission Date: 20241016
  Serious: Yes (Other)
  Sender: ASTRAZENECA
  Company Number: 2024A096553

PATIENT
  Age: 77 Year
  Sex: Male
  Weight: 59 kg

DRUGS (5)
  1. IMFINZI [Suspect]
     Active Substance: DURVALUMAB
     Indication: Hepatocellular carcinoma
     Dosage: DOSE UNKNOWN 1500.0MG UNKNOWN
     Route: 041
     Dates: start: 20231114, end: 20231212
  2. IMJUDO [Suspect]
     Active Substance: TREMELIMUMAB\TREMELIMUMAB-ACTL
     Indication: Hepatocellular carcinoma
     Dosage: DOSE UNKNOWN
     Route: 041
     Dates: start: 20231114, end: 20231212
  3. HALCION [Concomitant]
     Active Substance: TRIAZOLAM
     Dosage: DOSE UNKNOWN
     Route: 065
  4. MIROGABALIN BESYLATE [Concomitant]
     Active Substance: MIROGABALIN BESYLATE
     Dosage: DOSE UNKNOWN
     Route: 065
  5. DAYVIGO [Concomitant]
     Active Substance: LEMBOREXANT
     Indication: Insomnia
     Route: 048

REACTIONS (1)
  - Immune-mediated enterocolitis [Unknown]

NARRATIVE: CASE EVENT DATE: 20240105
